FAERS Safety Report 24954007 (Version 2)
Quarter: 2025Q2

REPORT INFORMATION
  Report Type: Spontaneous
  Country: US (occurrence: US)
  Receive Date: 20250211
  Receipt Date: 20250520
  Transmission Date: 20250716
  Serious: Yes (Hospitalization, Other)
  Sender: TEVA
  Company Number: US-TEVA-VS-3295006

PATIENT
  Age: 25 Year
  Sex: Male

DRUGS (1)
  1. CLARAVIS [Suspect]
     Active Substance: ISOTRETINOIN
     Indication: Product used for unknown indication
     Route: 065
     Dates: start: 201611, end: 201702

REACTIONS (11)
  - Anxiety [Not Recovered/Not Resolved]
  - Noninfective encephalitis [Unknown]
  - Dizziness [Not Recovered/Not Resolved]
  - Gastrointestinal disorder [Not Recovered/Not Resolved]
  - Vision blurred [Unknown]
  - Head discomfort [Unknown]
  - Cerebral disorder [Unknown]
  - Impaired work ability [Not Recovered/Not Resolved]
  - Overgrowth fungal [Unknown]
  - Tachycardia [Unknown]
  - Gait disturbance [Unknown]

NARRATIVE: CASE EVENT DATE: 20170101
